FAERS Safety Report 10023493 (Version 1)
Quarter: 2014Q1

REPORT INFORMATION
  Report Type: Spontaneous
  Country: US (occurrence: US)
  Receive Date: 20140320
  Receipt Date: 20140320
  Transmission Date: 20141002
  Serious: Yes (Other)
  Sender: FDA-Public Use
  Company Number: US-AMGEN-USASP2014019130

PATIENT
  Age: 36 Year
  Sex: Male

DRUGS (11)
  1. ENBREL [Suspect]
     Indication: PRODUCT USED FOR UNKNOWN INDICATION
     Dosage: 50 MG, QWK
     Route: 065
     Dates: end: 20140107
  2. NEXIUM                             /01479302/ [Concomitant]
     Dosage: UNK
  3. VERAPAMIL [Concomitant]
     Dosage: UNK
  4. PRAVASTATIN [Concomitant]
     Dosage: UNK
  5. HYDROCHLOROTHIAZIDE [Concomitant]
     Dosage: UNK
  6. ASPIRIN [Concomitant]
     Dosage: UNK
  7. TREXIMET [Concomitant]
     Dosage: UNK
  8. AMITRIPTYLLINE [Concomitant]
     Dosage: UNK
  9. ZETIA [Concomitant]
     Dosage: UNK
  10. PARAMOL                            /00020001/ [Concomitant]
     Dosage: UNK
  11. OXUS [Concomitant]
     Dosage: UNK

REACTIONS (1)
  - Thrombocytopenia [Recovered/Resolved]
